FAERS Safety Report 4778480-1 (Version None)
Quarter: 2005Q3

REPORT INFORMATION
  Report Type: 
  Country: None (occurrence: None)
  Receive Date: 20050923
  Receipt Date: 20050923
  Transmission Date: 20060218
  Serious: Yes (Death)
  Sender: FDA-Public Use
  Company Number: None

PATIENT
  Age: 13 Year
  Sex: Female
  Weight: 60 kg

DRUGS (2)
  1. DIMETHYL SULFOXIDE [Suspect]
     Indication: STEM CELL TRANSPLANT
     Dosage: 7.5% ONCE IV
     Route: 042
     Dates: start: 20050908, end: 20050908
  2. STEM CELL TISSUE [Suspect]

REACTIONS (6)
  - COMPLICATIONS OF TRANSPLANT SURGERY [None]
  - INFUSION RELATED REACTION [None]
  - LOSS OF CONSCIOUSNESS [None]
  - MICTURITION URGENCY [None]
  - STEM CELL TRANSPLANT [None]
  - TACHYPNOEA [None]
